FAERS Safety Report 20591146 (Version 4)
Quarter: 2022Q4

REPORT INFORMATION
  Report Type: Spontaneous
  Country: CZ (occurrence: CZ)
  Receive Date: 20220314
  Receipt Date: 20221201
  Transmission Date: 20230112
  Serious: Yes (Life-Threatening)
  Sender: FDA-Public Use
  Company Number: CZ-009507513-1501CZE002662

PATIENT
  Age: 11 Year
  Sex: Female

DRUGS (25)
  1. FENOFIBRATE [Suspect]
     Active Substance: FENOFIBRATE
     Indication: Spinal cord neoplasm
     Dosage: COMBAT II/FOR 31 MONTHS
     Route: 065
     Dates: start: 200901, end: 201010
  2. FENOFIBRATE [Suspect]
     Active Substance: FENOFIBRATE
     Indication: Oligoastrocytoma
     Dosage: UNK
     Route: 065
  3. FENOFIBRATE [Suspect]
     Active Substance: FENOFIBRATE
     Indication: Anaplastic oligodendroglioma
  4. CELECOXIB [Suspect]
     Active Substance: CELECOXIB
     Indication: Oligoastrocytoma
     Dosage: LOW DOSE COMBAT METRONOMIC CHEMO/FOR 31 MONTH
     Route: 065
     Dates: start: 200803, end: 201010
  5. CELECOXIB [Suspect]
     Active Substance: CELECOXIB
     Indication: Spinal cord neoplasm
  6. CELECOXIB [Suspect]
     Active Substance: CELECOXIB
     Indication: Anaplastic oligodendroglioma
  7. VITAMIN D [Suspect]
     Active Substance: VITAMIN D NOS
     Indication: Spinal cord neoplasm
     Dosage: COMBAT II/FOR 31 MONTHS
     Route: 065
     Dates: start: 200901, end: 201010
  8. VITAMIN D [Suspect]
     Active Substance: VITAMIN D NOS
     Indication: Oligoastrocytoma
  9. VITAMIN D [Suspect]
     Active Substance: VITAMIN D NOS
     Indication: Anaplastic oligodendroglioma
  10. TEMOZOLOMIDE [Suspect]
     Active Substance: TEMOZOLOMIDE
     Indication: Oligoastrocytoma
     Dosage: 90 MG/SQ. METER, QD,FOR 42 DAYS(ACNS0126 PROTOCO
     Route: 048
     Dates: start: 200705, end: 200712
  11. TEMOZOLOMIDE [Suspect]
     Active Substance: TEMOZOLOMIDE
     Indication: Spinal cord neoplasm
     Dosage: 30 MG/SQ. METER, QD, LOW DOSE COMBAT METRONOMIC
     Route: 048
     Dates: start: 200803
  12. TEMOZOLOMIDE [Suspect]
     Active Substance: TEMOZOLOMIDE
     Indication: Anaplastic oligodendroglioma
     Dosage: 15 MG/SQ. METER, QD (REDUCED TO 50PERCENT)
     Route: 048
     Dates: start: 201010
  13. TRETINOIN [Suspect]
     Active Substance: TRETINOIN
     Indication: Oligoastrocytoma
     Dosage: LOW DOSE COMBAT METRONOMIC CHEMOTHERAPY
     Route: 065
  14. TRETINOIN [Suspect]
     Active Substance: TRETINOIN
     Indication: Spinal cord neoplasm
  15. BEVACIZUMAB [Suspect]
     Active Substance: BEVACIZUMAB
     Indication: Spinal cord neoplasm
     Dosage: COMBAT III/FOR 31 MONTHS
     Route: 065
     Dates: start: 201001, end: 201010
  16. BEVACIZUMAB [Suspect]
     Active Substance: BEVACIZUMAB
     Indication: Oligoastrocytoma
  17. BEVACIZUMAB [Suspect]
     Active Substance: BEVACIZUMAB
     Indication: Anaplastic oligodendroglioma
  18. ETOPOSIDE [Suspect]
     Active Substance: ETOPOSIDE
     Indication: Spinal cord neoplasm
     Dosage: 25 MG/SQ. METER, QD, LOW DOSE COMBAT METRONOMIC
     Route: 065
     Dates: start: 200803
  19. ETOPOSIDE [Suspect]
     Active Substance: ETOPOSIDE
     Indication: Oligoastrocytoma
     Dosage: 12.5 MG/M2, QD,
     Route: 065
     Dates: start: 201010
  20. ETOPOSIDE [Suspect]
     Active Substance: ETOPOSIDE
     Indication: Anaplastic oligodendroglioma
  21. VINBLASTINE [Suspect]
     Active Substance: VINBLASTINE
     Indication: Oligoastrocytoma
     Dosage: 6 MG/SQ. METER, QW(STANDARD DOSE 6 MG/M2 WEEKLY
     Route: 065
     Dates: start: 201102
  22. VINBLASTINE [Suspect]
     Active Substance: VINBLASTINE
     Indication: Spinal cord neoplasm
     Dosage: 2 MG/M2 WEEKLY
     Route: 065
     Dates: start: 201205
  23. VINBLASTINE [Suspect]
     Active Substance: VINBLASTINE
     Indication: Anaplastic oligodendroglioma
  24. TRETINOIN [Suspect]
     Active Substance: TRETINOIN
     Indication: Spinal cord neoplasm
     Dosage: FOR 31 MONTHS
     Route: 065
     Dates: start: 200803, end: 201010
  25. TRETINOIN [Suspect]
     Active Substance: TRETINOIN
     Indication: Anaplastic oligodendroglioma

REACTIONS (3)
  - Myelosuppression [Recovered/Resolved]
  - Product administration error [Unknown]
  - Product use in unapproved indication [Unknown]
